FAERS Safety Report 18746058 (Version 1)
Quarter: 2021Q1

REPORT INFORMATION
  Report Type: Spontaneous
  Country: US (occurrence: US)
  Receive Date: 20210114
  Receipt Date: 20210114
  Transmission Date: 20210419
  Serious: Yes (Death, Other)
  Sender: FDA-Public Use
  Company Number: None

PATIENT
  Age: 61 Year
  Sex: Male
  Weight: 76.3 kg

DRUGS (1)
  1. CHLORHEXIDINE GLUCONATE ORAL RINSE, 0.12% [Suspect]
     Active Substance: CHLORHEXIDINE GLUCONATE
     Indication: DENTAL DISORDER PROPHYLAXIS
     Route: 002
     Dates: start: 20201012, end: 20201113

REACTIONS (12)
  - Blood gases abnormal [None]
  - Sputum culture positive [None]
  - Burkholderia test positive [None]
  - Body temperature increased [None]
  - Pseudomonas test [None]
  - Multiple organ dysfunction syndrome [None]
  - Product quality issue [None]
  - Tachycardia [None]
  - White blood cell count increased [None]
  - General physical health deterioration [None]
  - Enterobacter test positive [None]
  - Recalled product administered [None]

NARRATIVE: CASE EVENT DATE: 20201111
